FAERS Safety Report 10412911 (Version 2)
Quarter: 2015Q1

REPORT INFORMATION
  Report Type: Spontaneous
  Country: AT (occurrence: AT)
  Receive Date: 20140827
  Receipt Date: 20150319
  Transmission Date: 20150720
  Serious: Yes (Hospitalization, Other)
  Sender: FDA-Public Use
  Company Number: PHHY2014AT105550

PATIENT
  Age: 43 Year
  Sex: Male

DRUGS (1)
  1. CIPROFLOXACIN. [Suspect]
     Active Substance: CIPROFLOXACIN
     Indication: EPIDIDYMITIS
     Dosage: 500 MG, BID
     Route: 065

REACTIONS (5)
  - Ligament disorder [Unknown]
  - Tendon discomfort [Unknown]
  - Intervertebral disc protrusion [Unknown]
  - Plantar fascial fibromatosis [Unknown]
  - Muscle strain [Unknown]
